FAERS Safety Report 5071520-4 (Version None)
Quarter: 2006Q3

REPORT INFORMATION
  Report Type: 
  Country: None (occurrence: None)
  Receive Date: 20060804
  Receipt Date: 20060711
  Transmission Date: 20061208
  Serious: Yes (Hospitalization)
  Sender: FDA-Public Use
  Company Number: JP-SANOFI-SYNTHELABO-A01200605542

PATIENT
  Sex: Female

DRUGS (9)
  1. CARBENIN [Suspect]
     Indication: FUNGAL INFECTION
     Route: 042
     Dates: start: 20060529, end: 20060604
  2. ALBUMIN [Suspect]
     Indication: DRUG USE FOR UNKNOWN INDICATION
     Dosage: UNK
     Route: 065
     Dates: end: 20060607
  3. FUNGUARD [Suspect]
     Indication: FUNGAL INFECTION
     Route: 042
     Dates: start: 20060529, end: 20060604
  4. OMEPRAL [Suspect]
     Indication: STRESS ULCER
     Route: 042
     Dates: start: 20060610, end: 20060617
  5. TAKEPRON [Suspect]
     Indication: DRUG USE FOR UNKNOWN INDICATION
     Dosage: UNK
     Route: 065
  6. VITAMEDIN [Suspect]
     Indication: VITAMIN B1 DEFICIENCY
     Dosage: 1 UNIT
     Route: 042
     Dates: start: 20060504, end: 20060617
  7. LOXONIN [Suspect]
     Indication: PYREXIA
     Route: 048
     Dates: start: 20060522, end: 20060526
  8. PENTAGIN [Suspect]
     Indication: RESTLESSNESS
     Route: 065
     Dates: start: 20060504, end: 20060617
  9. CALBLOCK [Suspect]
     Indication: HYPERTENSION
     Route: 048
     Dates: start: 20060507, end: 20060610

REACTIONS (3)
  - CHOLESTASIS [None]
  - HEPATIC FUNCTION ABNORMAL [None]
  - JAUNDICE [None]
